FAERS Safety Report 20170664 (Version 1)
Quarter: 2021Q4

REPORT INFORMATION
  Report Type: Spontaneous
  Country: US (occurrence: None)
  Receive Date: 20211210
  Receipt Date: 20211210
  Transmission Date: 20220303
  Serious: Yes (Hospitalization)
  Sender: FDA-Public Use
  Company Number: None

PATIENT
  Sex: Female
  Weight: 101.6 kg

DRUGS (3)
  1. TAXOTERE [Suspect]
     Active Substance: DOCETAXEL
     Indication: Product used for unknown indication
     Dates: end: 20211126
  2. PERTUZUMAB [Suspect]
     Active Substance: PERTUZUMAB
     Dates: end: 20211126
  3. HERCEPTIN [Suspect]
     Active Substance: TRASTUZUMAB
     Dates: end: 20211126

REACTIONS (3)
  - Diarrhoea [None]
  - Haematochezia [None]
  - Clostridium test positive [None]

NARRATIVE: CASE EVENT DATE: 20211206
